FAERS Safety Report 26147374 (Version 1)
Quarter: 2025Q4

REPORT INFORMATION
  Report Type: Spontaneous
  Country: CN (occurrence: CN)
  Receive Date: 20251211
  Receipt Date: 20251211
  Transmission Date: 20260117
  Serious: Yes (Other)
  Sender: PURDUE
  Company Number: CN-NAPPMUNDI-GBR-2025-0131200

PATIENT
  Age: 35 Year
  Sex: Male
  Weight: 69 kg

DRUGS (1)
  1. BUPRENORPHINE [Suspect]
     Active Substance: BUPRENORPHINE
     Indication: Symptomatic treatment
     Dosage: 5 MILLIGRAM, WEEKLY
     Route: 062
     Dates: start: 20251118, end: 20251118

REACTIONS (2)
  - Chest discomfort [Recovered/Resolved]
  - Rash [Recovered/Resolved]

NARRATIVE: CASE EVENT DATE: 20251118
